FAERS Safety Report 8126357-6 (Version None)
Quarter: 2012Q1

REPORT INFORMATION
  Report Type: 
  Country: None (occurrence: None)
  Receive Date: 20120209
  Receipt Date: 20120131
  Transmission Date: 20120608
  Serious: Yes (Hospitalization, Disabling, Other)
  Sender: FDA-Public Use
  Company Number: FR-RB-036437-12

PATIENT
  Age: 30 Year
  Sex: Male

DRUGS (1)
  1. SUBUTEX [Suspect]
     Indication: PRODUCT USED FOR UNKNOWN INDICATION
     Dosage: HIGH DOSAGE MAINTENANCE
     Route: 013

REACTIONS (5)
  - PERIPHERAL ISCHAEMIA [None]
  - ARTERIAL OCCLUSIVE DISEASE [None]
  - HAEMOTHORAX [None]
  - INTENTIONAL DRUG MISUSE [None]
  - EXTREMITY NECROSIS [None]
